FAERS Safety Report 4405069-6 (Version None)
Quarter: 2004Q3

REPORT INFORMATION
  Report Type: 
  Country: None (occurrence: None)
  Receive Date: 20040716
  Receipt Date: 20040705
  Transmission Date: 20050211
  Serious: Yes (Hospitalization)
  Sender: FDA-Public Use
  Company Number: 2004SE03837

PATIENT
  Age: 61 Year
  Sex: Female

DRUGS (4)
  1. OXIS [Suspect]
     Indication: CHRONIC OBSTRUCTIVE AIRWAYS DISEASE
  2. SPIROCORT [Suspect]
     Indication: CHRONIC OBSTRUCTIVE AIRWAYS DISEASE
  3. CORODIL [Concomitant]
  4. CENTYL MED KALIUMLORID [Concomitant]

REACTIONS (2)
  - IMPLANT SITE INFECTION [None]
  - TOOTH INFECTION [None]
